FAERS Safety Report 10983926 (Version 11)
Quarter: 2015Q4

REPORT INFORMATION
  Report Type: Report from Study
  Country: CA (occurrence: CA)
  Receive Date: 20150403
  Receipt Date: 20151216
  Transmission Date: 20160304
  Serious: Yes (Death, Hospitalization, Other)
  Sender: FDA-Public Use
  Company Number: CA-ABBVIE-15K-028-1369131-00

PATIENT
  Sex: Male

DRUGS (6)
  1. UVB [Concomitant]
     Indication: PRODUCT USED FOR UNKNOWN INDICATION
  2. HUMIRA [Suspect]
     Active Substance: ADALIMUMAB
     Route: 058
     Dates: start: 20150711
  3. HUMIRA [Suspect]
     Active Substance: ADALIMUMAB
     Indication: PSORIASIS
     Route: 058
     Dates: start: 20121203
  4. GLICLAZIDE [Concomitant]
     Active Substance: GLICLAZIDE
     Indication: PRODUCT USED FOR UNKNOWN INDICATION
  5. HUMIRA [Suspect]
     Active Substance: ADALIMUMAB
     Route: 058
     Dates: start: 20130108, end: 20150410
  6. METHOTREXATE [Concomitant]
     Active Substance: METHOTREXATE
     Indication: PRODUCT USED FOR UNKNOWN INDICATION

REACTIONS (8)
  - Hospitalisation [Unknown]
  - Meningioma [Unknown]
  - Speech disorder [Not Recovered/Not Resolved]
  - Death [Fatal]
  - Meningioma [Unknown]
  - Headache [Unknown]
  - Cerebrovascular accident [Unknown]
  - Palliative care [Unknown]

NARRATIVE: CASE EVENT DATE: 2015
